FAERS Safety Report 6749203-1 (Version None)
Quarter: 2010Q2

REPORT INFORMATION
  Report Type: 
  Country: None (occurrence: None)
  Receive Date: 20100601
  Receipt Date: 20100429
  Transmission Date: 20101027
  Serious: No
  Sender: FDA-Public Use
  Company Number: US-BAYER-201014992BCC

PATIENT
  Age: 60 Year
  Sex: Female
  Weight: 72 kg

DRUGS (8)
  1. ALEVE (CAPLET) [Suspect]
     Indication: BACK PAIN
     Route: 048
     Dates: start: 20100401
  2. CANASOPAN [Concomitant]
     Route: 065
  3. HYDROXYZINE [Concomitant]
     Route: 065
  4. TOPOROL [Concomitant]
     Route: 065
  5. ESTRADIOL [Concomitant]
     Route: 065
  6. NASONEX [Concomitant]
     Route: 065
  7. PARAFON FORTE [Concomitant]
     Route: 065
  8. OXYCODONE HCL AND ACETAMINOPHEN [Concomitant]

REACTIONS (1)
  - DIARRHOEA [None]
